FAERS Safety Report 5364946-2 (Version None)
Quarter: 2007Q2

REPORT INFORMATION
  Report Type: 
  Country: None (occurrence: None)
  Receive Date: 20070621
  Receipt Date: 20070614
  Transmission Date: 20071010
  Serious: Yes (Hospitalization, Disabling)
  Sender: FDA-Public Use
  Company Number: TW-BAYER-200713105GDS

PATIENT
  Age: 58 Year
  Sex: Female

DRUGS (2)
  1. ASPIRIN [Suspect]
     Indication: HEADACHE
     Dosage: TOTAL DAILY DOSE: 81 MG  UNIT DOSE: 81 MG
     Route: 048
     Dates: start: 20070518, end: 20070518
  2. ANTIBIOTICS [Concomitant]
     Indication: INFECTION
     Route: 065

REACTIONS (1)
  - DEAFNESS UNILATERAL [None]
